FAERS Safety Report 24740170 (Version 2)
Quarter: 2025Q1

REPORT INFORMATION
  Report Type: Spontaneous
  Country: CA (occurrence: CA)
  Receive Date: 20241216
  Receipt Date: 20250219
  Transmission Date: 20250409
  Serious: Yes (Other)
  Sender: JOHNSON AND JOHNSON
  Company Number: CA-JNJFOC-20241216894

PATIENT
  Sex: Female

DRUGS (9)
  1. INVEGA SUSTENNA [Suspect]
     Active Substance: PALIPERIDONE PALMITATE
     Indication: Schizophrenia
     Dosage: LAST APPLIED DATE:--2019
     Route: 030
     Dates: start: 2014
  2. INVEGA SUSTENNA [Suspect]
     Active Substance: PALIPERIDONE PALMITATE
  3. INVEGA SUSTENNA [Suspect]
     Active Substance: PALIPERIDONE PALMITATE
  4. ATROVENT HFA [Concomitant]
     Active Substance: IPRATROPIUM BROMIDE
     Dates: start: 20170625
  5. PREDNISONE [Concomitant]
     Active Substance: PREDNISONE
     Dosage: FOR 4 DAYS
     Dates: start: 20170603
  6. CLOXACILLIN [Concomitant]
     Active Substance: CLOXACILLIN
     Dates: start: 20170529
  7. CEPHALEXIN [Concomitant]
     Active Substance: CEPHALEXIN
     Dates: start: 20170417
  8. BETAMETHASONE VALERATE [Concomitant]
     Active Substance: BETAMETHASONE VALERATE
     Dates: start: 20170403
  9. FUCIDIN (FUSIDIC ACID) [Concomitant]
     Active Substance: FUSIDIC ACID
     Dates: start: 20170403

REACTIONS (6)
  - Haemorrhagic cyst [Unknown]
  - Liver disorder [Unknown]
  - Blood cholesterol abnormal [Unknown]
  - Hallucination [Unknown]
  - Weight increased [Unknown]
  - Increased appetite [Unknown]
